FAERS Safety Report 10904161 (Version 1)
Quarter: 2015Q1

REPORT INFORMATION
  Report Type: Report from Study
  Country: US (occurrence: None)
  Receive Date: 20150306
  Receipt Date: 20150306
  Transmission Date: 20150721
  Serious: Yes (Hospitalization, Other)
  Sender: FDA-Public Use
  Company Number: US-2010VAL000242

PATIENT
  Age: 75 Year
  Sex: Male

DRUGS (19)
  1. ZETIA [Concomitant]
     Active Substance: EZETIMIBE
  2. AGRIPPAL [Suspect]
     Active Substance: INFLUENZA VIRUS VACCINE
     Indication: IMMUNISATION
     Dosage: 0.5 ML, UNK, INTRAMUSCULAR
     Route: 030
     Dates: start: 20100914, end: 20100914
  3. GLYSET /01364001/ (MIGILTOL) [Concomitant]
  4. FLOMAX /008889901/ (MORNIFLUMATE) [Concomitant]
  5. SYNTHROID [Concomitant]
     Active Substance: LEVOTHYROXINE SODIUM
  6. LIPITOR (ATROVASTATIN CALCIUM) [Concomitant]
  7. SPIRONOLACTONE (SPIRONOLACTONE) [Concomitant]
     Active Substance: SPIRONOLACTONE
  8. NIASPAN (NICOTINIC ACID) [Concomitant]
  9. IRON [Concomitant]
     Active Substance: IRON
  10. FERROUS SULFATE [Concomitant]
     Active Substance: FERROUS SULFATE\FERROUS SULFATE, DRIED
  11. LANTUS [Concomitant]
     Active Substance: INSULIN GLARGINE
  12. ASPIRIN (ACETYLSALICYLIC ACID) [Concomitant]
     Active Substance: ASPIRIN
  13. QUINAPRIL [Concomitant]
     Active Substance: QUINAPRIL\QUINAPRIL HYDROCHLORIDE
  14. PLAVIX (CLOPIDOGREL BISULFATE) [Concomitant]
  15. LOPRESSOR [Suspect]
     Active Substance: METOPROLOL TARTRATE
     Indication: PRODUCT USED FOR UNKNOWN INDICATION
  16. NORVASC [Concomitant]
     Active Substance: AMLODIPINE BESYLATE
  17. FUROSEMIDE (FUROSEMIDE) [Concomitant]
     Active Substance: FUROSEMIDE
  18. HUMALOG [Concomitant]
     Active Substance: INSULIN LISPRO
  19. COUMADIN /00014802/ (WARFARIN SODIUM) [Concomitant]

REACTIONS (8)
  - Acute kidney injury [None]
  - Cardiac failure congestive [None]
  - Atrial fibrillation [None]
  - Condition aggravated [None]
  - Hyperkalaemia [None]
  - Nephrosclerosis [None]
  - Acute prerenal failure [None]
  - Gastrointestinal haemorrhage [None]

NARRATIVE: CASE EVENT DATE: 20101004
